FAERS Safety Report 5095232-6 (Version None)
Quarter: 2006Q3

REPORT INFORMATION
  Report Type: 
  Country: None (occurrence: None)
  Receive Date: 20060830
  Receipt Date: 20060817
  Transmission Date: 20061208
  Serious: No
  Sender: FDA-Public Use
  Company Number: 2006RL000301

PATIENT
  Age: 66 Year
  Sex: Male
  Weight: 83.9154 kg

DRUGS (4)
  1. RYTHMOL [Suspect]
     Indication: ATRIAL FIBRILLATION
     Dosage: 325 MG; BID; PO;  225 MG; BID; PO
     Route: 048
     Dates: start: 20060701, end: 20060701
  2. RYTHMOL [Suspect]
     Indication: ATRIAL FIBRILLATION
     Dosage: 325 MG; BID; PO;  225 MG; BID; PO
     Route: 048
     Dates: start: 20060701
  3. ATENOLOL [Concomitant]
  4. PREDNISONE TAB [Concomitant]

REACTIONS (2)
  - INTRAOCULAR PRESSURE INCREASED [None]
  - VISION BLURRED [None]
